FAERS Safety Report 7341440-0 (Version None)
Quarter: 2011Q1

REPORT INFORMATION
  Report Type: 
  Country: None (occurrence: None)
  Receive Date: 20110309
  Receipt Date: 20110216
  Transmission Date: 20110831
  Serious: Yes (Hospitalization)
  Sender: FDA-Public Use
  Company Number: US-BAYER-201029433NA

PATIENT
  Sex: Female
  Weight: 63.3 kg

DRUGS (4)
  1. YASMIN [Suspect]
     Dates: start: 20000101, end: 20100201
  2. OCELLA [Suspect]
     Indication: PRODUCT USED FOR UNKNOWN INDICATION
     Dosage: UNK
  3. ALEVE [Concomitant]
  4. YAZ [Suspect]
     Dates: start: 20000101, end: 20100201

REACTIONS (3)
  - BILIARY DYSKINESIA [None]
  - EMOTIONAL DISTRESS [None]
  - PAIN [None]
